FAERS Safety Report 4338481-4 (Version None)
Quarter: 2004Q2

REPORT INFORMATION
  Report Type: 
  Country: None (occurrence: None)
  Receive Date: 20040414
  Receipt Date: 20031219
  Transmission Date: 20050107
  Serious: Yes (Other)
  Sender: FDA-Public Use
  Company Number: US-GLAXOSMITHKLINE-A0490831A

PATIENT

DRUGS (1)
  1. BACTROBAN [Suspect]
     Indication: ILL-DEFINED DISORDER

REACTIONS (1)
  - PERICARDITIS [None]
